FAERS Safety Report 6276005-5 (Version None)
Quarter: 2009Q3

REPORT INFORMATION
  Report Type: 
  Country: None (occurrence: None)
  Receive Date: 20090713
  Receipt Date: 20090701
  Transmission Date: 20100115
  Serious: Yes (Death, Hospitalization)
  Sender: FDA-Public Use
  Company Number: THYM-1001078

PATIENT
  Age: 65 Year
  Sex: Female
  Weight: 42 kg

DRUGS (5)
  1. THYMOGLOBULIN [Suspect]
     Indication: APLASTIC ANAEMIA
     Dosage: 3 MG/KG, QD, INTRAVENOUS
     Route: 042
     Dates: start: 20090427, end: 20090501
  2. SULFAMETHOXAZOLE AND TRIMETHOPRIM [Concomitant]
  3. ITRACONAZOLE [Concomitant]
  4. PREDNISOLONE ACETATE [Concomitant]
  5. CYCLOSPORINE [Concomitant]

REACTIONS (4)
  - APLASTIC ANAEMIA [None]
  - DISEASE PROGRESSION [None]
  - DISSEMINATED INTRAVASCULAR COAGULATION [None]
  - THERAPEUTIC RESPONSE DECREASED [None]
